FAERS Safety Report 6308524-7 (Version None)
Quarter: 2009Q3

REPORT INFORMATION
  Report Type: 
  Country: None (occurrence: None)
  Receive Date: 20090811
  Receipt Date: 20090731
  Transmission Date: 20100115
  Serious: Yes (Hospitalization)
  Sender: FDA-Public Use
  Company Number: 2009080010

PATIENT
  Age: 72 Year
  Sex: Male

DRUGS (2)
  1. TORSEMIDE [Suspect]
     Dosage: ORAL
     Route: 048
     Dates: end: 20081118
  2. TILUR (ACEMETACIN) [Suspect]
     Indication: PAIN
     Dosage: ORAL
     Route: 048
     Dates: end: 20081118

REACTIONS (3)
  - CONDITION AGGRAVATED [None]
  - METABOLIC ACIDOSIS [None]
  - RENAL FAILURE ACUTE [None]
